FAERS Safety Report 5764667-8 (Version None)
Quarter: 2008Q2

REPORT INFORMATION
  Report Type: 
  Country: None (occurrence: None)
  Receive Date: 20080611
  Receipt Date: 20080603
  Transmission Date: 20081010
  Serious: Yes (Other)
  Sender: FDA-Public Use
  Company Number: PHHY2008KR09852

PATIENT

DRUGS (2)
  1. LESCOL [Suspect]
     Dosage: 20MG/DAY
     Route: 048
  2. LESCOL [Suspect]
     Dosage: 40MG/DAY

REACTIONS (2)
  - BLOOD CHOLESTEROL ABNORMAL [None]
  - STENT PLACEMENT [None]
